FAERS Safety Report 7512635-8 (Version None)
Quarter: 2011Q2

REPORT INFORMATION
  Report Type: 
  Country: None (occurrence: None)
  Receive Date: 20110520
  Receipt Date: 20110512
  Transmission Date: 20111010
  Serious: Yes (Other)
  Sender: FDA-Public Use
  Company Number: 2011SP022078

PATIENT
  Sex: Male

DRUGS (1)
  1. DULERA TABLET [Suspect]
     Indication: PRODUCT USED FOR UNKNOWN INDICATION
     Dosage: ; INH
     Route: 055

REACTIONS (1)
  - DYSTONIA [None]
